FAERS Safety Report 16985332 (Version 1)
Quarter: 2019Q4

REPORT INFORMATION
  Report Type: Spontaneous
  Country: CN (occurrence: CN)
  Receive Date: 20191101
  Receipt Date: 20191101
  Transmission Date: 20200122
  Serious: Yes (Hospitalization, Other)
  Sender: FDA-Public Use
  Company Number: CN-PFIZER INC-2019467830

PATIENT
  Age: 66 Year
  Sex: Female
  Weight: 40 kg

DRUGS (2)
  1. ANZATAX (PACLITAXEL) [Suspect]
     Active Substance: PACLITAXEL
     Indication: CHEMOTHERAPY
     Dosage: 240 MG, 1X/DAY
     Route: 041
     Dates: start: 20191015, end: 20191015
  2. CARBOPLATIN. [Suspect]
     Active Substance: CARBOPLATIN
     Indication: CHEMOTHERAPY
     Dosage: 550 MG, 1X/DAY
     Route: 041
     Dates: start: 20191015, end: 20191015

REACTIONS (2)
  - Bone marrow failure [Recovering/Resolving]
  - Pelvic infection [Unknown]

NARRATIVE: CASE EVENT DATE: 20191021
